FAERS Safety Report 8034667-6 (Version None)
Quarter: 2012Q1

REPORT INFORMATION
  Report Type: 
  Country: None (occurrence: None)
  Receive Date: 20120111
  Receipt Date: 20111202
  Transmission Date: 20120608
  Serious: Yes (Hospitalization, Other)
  Sender: FDA-Public Use
  Company Number: BR-BRISTOL-MYERS SQUIBB COMPANY-16326720

PATIENT
  Age: 48 Year
  Sex: Male

DRUGS (1)
  1. ONGLYZA [Suspect]
     Route: 048

REACTIONS (2)
  - DYSPNOEA [None]
  - CARDIAC DISORDER [None]
